FAERS Safety Report 5913734-4 (Version None)
Quarter: 2008Q4

REPORT INFORMATION
  Report Type: 
  Country: None (occurrence: None)
  Receive Date: 20081009
  Receipt Date: 20080929
  Transmission Date: 20090506
  Serious: Yes (Other)
  Sender: FDA-Public Use
  Company Number: US-AMGEN-US310369

PATIENT
  Sex: Male

DRUGS (29)
  1. ARANESP [Suspect]
     Indication: DIALYSIS
     Route: 065
     Dates: start: 20080908
  2. PROCRIT [Suspect]
     Indication: DIALYSIS
  3. TYLENOL (CAPLET) [Concomitant]
  4. ASPIRIN [Concomitant]
  5. BUMETANIDE [Concomitant]
  6. CATAPRES [Concomitant]
  7. COMBIVENT [Concomitant]
  8. FLOVENT [Concomitant]
  9. GUAIFENESIN [Concomitant]
  10. HYDRALAZINE HCL [Concomitant]
  11. LANTUS [Concomitant]
  12. LISINOPRIL [Concomitant]
  13. MANNITOL [Concomitant]
  14. METOCLOPRAMIDE [Concomitant]
  15. METOLAZONE [Concomitant]
  16. METOPROLOL TARTRATE [Concomitant]
  17. MORPHINE [Concomitant]
  18. NOVOLIN R [Concomitant]
  19. PREDNISONE TAB [Concomitant]
  20. PROTONIX [Concomitant]
  21. SILVADENE [Concomitant]
  22. SIMVASTATIN [Concomitant]
  23. SPIRONOLACTONE [Concomitant]
  24. MULTI-VITAMINS [Concomitant]
  25. VANCOMYCIN HYDROCHLORIDE [Concomitant]
  26. ASCORBIC ACID [Concomitant]
  27. AMBIEN [Concomitant]
  28. KOVIA OINTMENT [Concomitant]
  29. ACID-CITRATE-DEXTROSE SOLUTION [Concomitant]

REACTIONS (3)
  - ANTI-PLATELET ANTIBODY POSITIVE [None]
  - INFECTION [None]
  - THERAPEUTIC RESPONSE DECREASED [None]
